FAERS Safety Report 8553390-2 (Version None)
Quarter: 2012Q3

REPORT INFORMATION
  Report Type: 
  Country: None (occurrence: None)
  Receive Date: 20120731
  Receipt Date: 20120720
  Transmission Date: 20120928
  Serious: Yes (Other)
  Sender: FDA-Public Use
  Company Number: US-ELI_LILLY_AND_COMPANY-US201110005927

PATIENT
  Sex: Male

DRUGS (15)
  1. VITAMIN B-12 [Concomitant]
     Dosage: UNK
  2. AMOXICILLIN [Concomitant]
     Dosage: UNK, PRN
  3. ASPIRIN [Concomitant]
     Dosage: 81 MG, UNK
  4. FORTEO [Suspect]
     Dosage: 20 UG, QD
  5. TRAMADOL HYDROCHLORIDE [Concomitant]
     Dosage: UNK
  6. ALFUZOSINE HCL [Concomitant]
     Dosage: UNK
  7. FORTEO [Suspect]
     Indication: OSTEOPOROSIS
     Dosage: 20 UG, QD
     Route: 065
     Dates: start: 20110901
  8. FORTEO [Suspect]
     Dosage: 20 UG, QD
  9. TIZANIDINE HYDROCHLORIDE [Concomitant]
     Indication: MUSCLE SPASMS
     Dosage: UNK
  10. PENICILLIN VK [Concomitant]
     Indication: TOOTH DISORDER
     Dosage: UNK, BID
  11. FORTEO [Suspect]
     Dosage: 20 UG, QD
  12. CALCIUM [Concomitant]
     Dosage: 600 MG, UNK
  13. GABAPENTIN [Concomitant]
     Dosage: UNK
  14. REVLIMID [Concomitant]
     Dosage: 10 MG, UNK
  15. FISH OIL [Concomitant]
     Dosage: UNK

REACTIONS (7)
  - JAW DISORDER [None]
  - ABDOMINAL PAIN UPPER [None]
  - URINE ABNORMALITY [None]
  - BACK DISORDER [None]
  - TOOTH INFECTION [None]
  - OSTEONECROSIS [None]
  - BLOOD CALCIUM INCREASED [None]
